FAERS Safety Report 19914360 (Version 1)
Quarter: 2021Q4

REPORT INFORMATION
  Report Type: Spontaneous
  Country: DE (occurrence: DE)
  Receive Date: 20211005
  Receipt Date: 20211005
  Transmission Date: 20220303
  Serious: Yes (Other)
  Sender: FDA-Public Use
  Company Number: DE-EMA-DD-20210917-KUMARVN_P-134732

PATIENT
  Age: 37 Year
  Sex: Male

DRUGS (8)
  1. BUPRENORPHINE [Interacting]
     Active Substance: BUPRENORPHINE
     Dosage: UNK
     Route: 065
  2. MORPHINE [Interacting]
     Active Substance: MORPHINE
     Dosage: UNK
     Route: 065
  3. ALCOHOL [Interacting]
     Active Substance: ALCOHOL
     Dosage: UNK
     Route: 065
  4. SUFENTANIL [Interacting]
     Active Substance: SUFENTANIL
     Dosage: UNK
     Route: 065
  5. PROPOFOL [Interacting]
     Active Substance: PROPOFOL
     Dosage: UNK
     Route: 065
  6. ACETAMINOPHEN [Interacting]
     Active Substance: ACETAMINOPHEN
     Dosage: UNK
     Route: 065
  7. CODEINE [Interacting]
     Active Substance: CODEINE
     Dosage: UNK
     Route: 065
  8. PREGABALIN [Interacting]
     Active Substance: PREGABALIN
     Dosage: UNK
     Route: 065

REACTIONS (9)
  - Patient uncooperative [Unknown]
  - Drug interaction [Unknown]
  - Somnolence [Unknown]
  - Injury [Unknown]
  - Gait disturbance [Unknown]
  - Substance abuse [Unknown]
  - Drug dependence [Unknown]
  - Dysarthria [Unknown]
  - Aggression [Unknown]
